FAERS Safety Report 21478570 (Version 1)
Quarter: 2022Q4

REPORT INFORMATION
  Report Type: Report from Study
  Country: IL (occurrence: IL)
  Receive Date: 20221019
  Receipt Date: 20221019
  Transmission Date: 20230113
  Serious: Yes (Death, Life-Threatening)
  Sender: FDA-Public Use
  Company Number: IL-SECURA BIO, INC.-2022-SECUR-IL000118

PATIENT

DRUGS (1)
  1. DUVELISIB [Suspect]
     Active Substance: DUVELISIB
     Indication: Chronic lymphocytic leukaemia
     Dosage: SUCCESSFULLY TREATED WITH THE DRUG FROM DECEMBER 2021, THAT IS, FOR AT LEAST 8 MONTHS, UNKNOWN
     Route: 065
     Dates: start: 202112

REACTIONS (1)
  - Illness [Fatal]
